FAERS Safety Report 23342231 (Version 1)
Quarter: 2023Q4

REPORT INFORMATION
  Report Type: Spontaneous
  Country: FR (occurrence: FR)
  Receive Date: 20231227
  Receipt Date: 20231227
  Transmission Date: 20240109
  Serious: Yes (Hospitalization)
  Sender: FDA-Public Use
  Company Number: None

PATIENT
  Age: 44 Year
  Sex: Male

DRUGS (3)
  1. DIAZEPAM [Suspect]
     Active Substance: DIAZEPAM
     Indication: Intentional overdose
     Dosage: ; IN TOTAL
     Route: 050
     Dates: start: 20230919, end: 20230919
  2. CLOZAPINE [Suspect]
     Active Substance: CLOZAPINE
     Indication: Intentional overdose
     Dosage: ; IN TOTAL
     Route: 050
     Dates: start: 20230919, end: 20230919
  3. VALPROATE SODIUM [Suspect]
     Active Substance: VALPROATE SODIUM
     Indication: Intentional overdose
     Dosage: ; IN TOTAL
     Route: 050
     Dates: start: 20230919, end: 20230919

REACTIONS (3)
  - Altered state of consciousness [Recovered/Resolved]
  - Poisoning deliberate [Recovered/Resolved]
  - Bradypnoea [Recovered/Resolved]

NARRATIVE: CASE EVENT DATE: 20230919
